FAERS Safety Report 13579304 (Version 1)
Quarter: 2017Q2

REPORT INFORMATION
  Report Type: Spontaneous
  Country: FR (occurrence: FR)
  Receive Date: 20170525
  Receipt Date: 20170525
  Transmission Date: 20170830
  Serious: Yes (Hospitalization)
  Sender: FDA-Public Use
  Company Number: FR-ASTRAZENECA-2017SE54301

PATIENT
  Age: 50 Year
  Sex: Female

DRUGS (6)
  1. LEVOTHYROXINE. [Concomitant]
     Active Substance: LEVOTHYROXINE
     Indication: HYPOTHYROIDISM
     Route: 048
  2. XEROQUEL [Suspect]
     Active Substance: QUETIAPINE FUMARATE
     Indication: BIPOLAR DISORDER
     Route: 048
     Dates: start: 201504
  3. LYRICA [Concomitant]
     Active Substance: PREGABALIN
     Indication: ANXIETY
     Route: 048
  4. STILNOX [Concomitant]
     Active Substance: ZOLPIDEM TARTRATE
     Indication: INSOMNIA
     Route: 048
  5. XANAX [Concomitant]
     Active Substance: ALPRAZOLAM
     Indication: ANXIETY
     Dosage: 0.5MG SPLITTING TABLET, 1MG TWICE DAILY
     Route: 048
  6. THERALENE [Concomitant]
     Active Substance: TRIMEPRAZINE
     Indication: INSOMNIA
     Dosage: 7 DROPS ORALLY ONCE DAILY
     Route: 048

REACTIONS (2)
  - Weight increased [Not Recovered/Not Resolved]
  - Type 2 diabetes mellitus [Not Recovered/Not Resolved]

NARRATIVE: CASE EVENT DATE: 201604
